FAERS Safety Report 4426608-5 (Version None)
Quarter: 2004Q3

REPORT INFORMATION
  Report Type: 
  Country: None (occurrence: None)
  Receive Date: 20040812
  Receipt Date: 20040812
  Transmission Date: 20050211
  Serious: Yes (Life-Threatening)
  Sender: FDA-Public Use
  Company Number: None

PATIENT
  Age: 17 Year
  Sex: Female

DRUGS (1)
  1. MARCAINE [Suspect]
     Dosage: 2.5 MG/KG ONE TIME D PARENTERAL
     Route: 051
     Dates: start: 20040805, end: 20040805

REACTIONS (5)
  - COMA [None]
  - DYSKINESIA [None]
  - MEDICATION ERROR [None]
  - NERVOUS SYSTEM DISORDER [None]
  - POSTURING [None]
